FAERS Safety Report 21967283 (Version 1)
Quarter: 2023Q1

REPORT INFORMATION
  Report Type: Spontaneous
  Country: CA (occurrence: CA)
  Receive Date: 20230208
  Receipt Date: 20230208
  Transmission Date: 20230418
  Serious: Yes (Other)
  Sender: FDA-Public Use
  Company Number: CA-002147023-NVSC2023CA023480

PATIENT
  Age: 24 Month
  Sex: Female

DRUGS (2)
  1. FLUOROMETHOLONE [Suspect]
     Active Substance: FLUOROMETHOLONE
     Indication: Ligneous conjunctivitis
     Dosage: UNK
     Route: 061
  2. CYCLOSPORINE [Suspect]
     Active Substance: CYCLOSPORINE
     Indication: Ligneous conjunctivitis
     Dosage: (EYE DROPS)
     Route: 061

REACTIONS (2)
  - Intraocular pressure increased [Unknown]
  - Lenticular opacities [Unknown]
